FAERS Safety Report 7324336-X (Version None)
Quarter: 2011Q1

REPORT INFORMATION
  Report Type: 
  Country: None (occurrence: None)
  Receive Date: 20110301
  Receipt Date: 20110222
  Transmission Date: 20110831
  Serious: Yes (Other)
  Sender: FDA-Public Use
  Company Number: NL-PFIZER INC-2011038976

PATIENT
  Age: 58 Year
  Sex: Male

DRUGS (18)
  1. DIPIDOLOR [Concomitant]
     Dosage: 15 MG, AS NEEDED
  2. PREDNISOLONE [Concomitant]
     Dosage: 10 MG, 1X/DAY
  3. AMOXICILLIN [Concomitant]
     Dosage: 1500 MG, UNK
  4. DALACIN [Suspect]
     Dosage: 300 MG, 4X/DAY
     Dates: start: 20110124
  5. ALLOPURINOL [Concomitant]
     Dosage: 200 MG, 1X/DAY
  6. NIZORAL [Concomitant]
     Dosage: 1 DF, 1X/DAY
  7. COLCHICINE [Concomitant]
     Dosage: 0.5 MG, 1X/DAY
  8. SIMVASTATIN [Concomitant]
     Dosage: 40 MG, 1X/DAY
  9. PANTOPRAZOL [Concomitant]
     Dosage: 40 MG, 2X/DAY
  10. TEMAZEPAM [Concomitant]
     Dosage: 10 MG, 1X/DAY
  11. CODEINE PHOSPHATE AND ACETAMINOPHEN [Concomitant]
     Dosage: 1 DF, 3X/DAY
  12. CODEINE [Concomitant]
     Dosage: 30 MG, 3X/DAY
  13. GLIMEPIRIDE [Concomitant]
     Dosage: 1 MG, 1X/DAY
  14. MOVICOLON [Concomitant]
     Dosage: 2 DF, 1X/DAY
  15. ENALAPRIL [Concomitant]
     Dosage: 5 MG, 1X/DAY
  16. CEFTRIAXONE SODIUM [Suspect]
     Dosage: 2000 MG, 2X/DAY
     Dates: start: 20110110, end: 20110123
  17. FRAXIPARINE [Concomitant]
     Dosage: 3 ML, 1X/DAY
     Route: 058
  18. DICLOFENAC SODIUM [Concomitant]
     Dosage: 25 MG, UNK

REACTIONS (1)
  - CHOLESTASIS [None]
